FAERS Safety Report 4748306-0 (Version None)
Quarter: 2005Q3

REPORT INFORMATION
  Report Type: 
  Country: None (occurrence: None)
  Receive Date: 20050818
  Receipt Date: 20050805
  Transmission Date: 20060218
  Serious: Yes (Hospitalization)
  Sender: FDA-Public Use
  Company Number: AU-MERCK-0508AUS00032

PATIENT
  Age: 72 Year
  Sex: Female
  Weight: 96 kg

DRUGS (8)
  1. ZETIA [Suspect]
     Indication: DYSLIPIDAEMIA
     Route: 048
     Dates: start: 20050101, end: 20050729
  2. INSULIN, BIPHASIC ISOPHANE [INJECTION] [Concomitant]
     Indication: DIABETES MELLITUS NON-INSULIN-DEPENDENT
     Route: 065
  3. ASPIRIN [Concomitant]
     Indication: ANTIPLATELET THERAPY
     Route: 065
  4. METOPROLOL [Concomitant]
     Indication: MYOCARDIAL ISCHAEMIA
     Route: 065
  5. TRANDOLAPRIL [Concomitant]
     Indication: HYPERTENSION
     Route: 065
  6. FUROSEMIDE [Concomitant]
     Indication: HYPERTENSION
     Route: 048
  7. ESOMEPRAZOLE [Concomitant]
     Indication: GASTROOESOPHAGEAL REFLUX DISEASE
     Route: 065
  8. ISOSORBIDE MONONITRATE [Concomitant]
     Indication: ANGINA PECTORIS
     Route: 065

REACTIONS (6)
  - DIZZINESS [None]
  - FALL [None]
  - GLYCOSYLATED HAEMOGLOBIN INCREASED [None]
  - HEAD INJURY [None]
  - HEADACHE [None]
  - LOSS OF CONSCIOUSNESS [None]
